FAERS Safety Report 11495972 (Version 4)
Quarter: 2018Q2

REPORT INFORMATION
  Report Type: Spontaneous
  Country: FR (occurrence: FR)
  Receive Date: 20150911
  Receipt Date: 20180510
  Transmission Date: 20180711
  Serious: Yes (Hospitalization, Disabling)
  Sender: FDA-Public Use
  Company Number: FR-SA-2015SA135955

PATIENT
  Age: 70 Year
  Sex: Male

DRUGS (3)
  1. OFLOCET [Suspect]
     Active Substance: OFLOXACIN
     Indication: INFECTION PROPHYLAXIS
     Route: 048
     Dates: start: 20150801, end: 201509
  2. STABLON [Suspect]
     Active Substance: TIANEPTINE
     Indication: DEPRESSION
     Route: 048
     Dates: start: 20150810, end: 20150814
  3. RIFAMPICINE [Suspect]
     Active Substance: RIFAMPIN
     Indication: INFECTION PROPHYLAXIS
     Route: 065
     Dates: start: 20150801

REACTIONS (1)
  - Psychomotor skills impaired [Not Recovered/Not Resolved]

NARRATIVE: CASE EVENT DATE: 20150808
